FAERS Safety Report 8630107 (Version 2)
Quarter: 2014Q1

REPORT INFORMATION
  Report Type: Spontaneous
  Country: US (occurrence: None)
  Receive Date: 20120323
  Receipt Date: 20140306
  Transmission Date: 20141002
  Serious: Yes (Hospitalization)
  Sender: FDA-Public Use
  Company Number: 163-21880-11053419

PATIENT
  Age: 67 Year
  Sex: Female
  Weight: 64.41 kg

DRUGS (15)
  1. REVLIMID [Suspect]
     Indication: MYELODYSPLASTIC SYNDROME
     Dosage: 10 MG, 4 IN 1 WK, PO
     Route: 048
     Dates: start: 20110425, end: 20110516
  2. ACYCLOVIR (ACICLOVIR) (ACICLOVIR) [Concomitant]
  3. BACTRIM (BACTRIM) [Concomitant]
  4. GLUCOSAMINE AND CHONDROITIN (GLUCOSAMINE W/CHONDROITIN SULFATE) [Concomitant]
  5. CALTRATE (CALCIUM CARBONATE) [Concomitant]
  6. LOSARTAN/HYDROCHLOROTHIAZIDE (HYZAAR) [Concomitant]
  7. METAMUCIL (METAMUCIL ^PROCTER + GAMBLE^) [Concomitant]
  8. OMEGA 3 (FISH OIL) [Concomitant]
  9. ONE-A-DAY WOMEN^S (ONE-A-DAY WOMEN^S) [Concomitant]
  10. POTASSIUM (POTASSIUM) [Concomitant]
  11. SPIRONOLACTONE [Concomitant]
  12. VITAMIN D (ERGOCALCIFEROL) [Concomitant]
  13. VYTORIN (INEGY) [Concomitant]
  14. ASA (ACETYLSALICYLIC ACID) [Concomitant]
  15. FLUCONAZOLE (FLUCONAZOLE) [Concomitant]

REACTIONS (3)
  - Pulmonary embolism [None]
  - White blood cell count decreased [None]
  - Neutrophil count decreased [None]
